FAERS Safety Report 5247377-5 (Version None)
Quarter: 2007Q1

REPORT INFORMATION
  Report Type: 
  Country: None (occurrence: None)
  Receive Date: 20070223
  Receipt Date: 20070223
  Transmission Date: 20070707
  Serious: Yes (Death, Hospitalization)
  Sender: FDA-Public Use
  Company Number: None

PATIENT
  Sex: Female
  Weight: 59 kg

DRUGS (3)
  1. TEMOZOLOMIDE [Suspect]
     Dosage: 2625 MG
  2. DILANTIN [Concomitant]
  3. KEPPRA [Concomitant]

REACTIONS (4)
  - DYSPHAGIA [None]
  - HERPES ZOSTER [None]
  - PNEUMONIA [None]
  - REFUSAL OF TREATMENT BY PATIENT [None]
